FAERS Safety Report 18544244 (Version 1)
Quarter: 2020Q4

REPORT INFORMATION
  Report Type: Spontaneous
  Country: JP (occurrence: JP)
  Receive Date: 20201125
  Receipt Date: 20201125
  Transmission Date: 20210114
  Serious: Yes (Other)
  Sender: FDA-Public Use
  Company Number: JP-SUN PHARMACEUTICAL INDUSTRIES LTD-2020R1-268711

PATIENT
  Age: 53 Year
  Sex: Female

DRUGS (1)
  1. LITHIUM. [Suspect]
     Active Substance: LITHIUM
     Indication: BIPOLAR DISORDER
     Dosage: 800 MILLIGRAM, DAILY

REACTIONS (3)
  - Dysgeusia [Recovered/Resolved]
  - Toxicity to various agents [Recovered/Resolved]
  - Burning mouth syndrome [Recovered/Resolved]
